FAERS Safety Report 15404119 (Version 1)
Quarter: 2018Q3

REPORT INFORMATION
  Report Type: Spontaneous
  Country: US (occurrence: US)
  Receive Date: 20180919
  Receipt Date: 20180919
  Transmission Date: 20181010
  Serious: No
  Sender: FDA-Public Use
  Company Number: US-AVADEL SPECIALTY PHARMACEUTICALS, LLC-2018AVA00236

PATIENT
  Age: 83 Year
  Sex: Male
  Weight: 79.37 kg

DRUGS (6)
  1. NOCTIVA [Suspect]
     Active Substance: DESMOPRESSIN ACETATE
     Indication: NOCTURIA
     Dosage: 3.32 ?G, 1X/DAY (1 SPRAY TO EACH NOSTRIL)
     Route: 045
     Dates: start: 201807, end: 201807
  2. AMLODIPINE BESYLATE. [Concomitant]
     Active Substance: AMLODIPINE BESYLATE
     Dosage: UNK
  3. OMEPRAZOLE. [Concomitant]
     Active Substance: OMEPRAZOLE
     Dosage: 20 MG, 1X/DAY (AS NEEDED)
  4. NOCTIVA [Suspect]
     Active Substance: DESMOPRESSIN ACETATE
     Indication: POLLAKIURIA
     Dosage: 1.66 ?G, 1X/DAY ALTERNATE NOSTRILS
     Route: 045
     Dates: start: 201807
  5. DICLOFENAC/MISOPROSTOL [Concomitant]
     Active Substance: DICLOFENAC SODIUM\MISOPROSTOL
     Dosage: 75 MG/0.2 MG, 1X/DAY
  6. IRBESARTAN. [Concomitant]
     Active Substance: IRBESARTAN
     Dosage: 300 MG, 1X/DAY

REACTIONS (6)
  - Product preparation error [Not Recovered/Not Resolved]
  - Incorrect dose administered [Recovered/Resolved]
  - Hyponatraemia [Unknown]
  - Sneezing [Recovered/Resolved]
  - Nasal discomfort [Not Recovered/Not Resolved]
  - Blood chloride decreased [Unknown]

NARRATIVE: CASE EVENT DATE: 201807
